FAERS Safety Report 24556394 (Version 4)
Quarter: 2024Q4

REPORT INFORMATION
  Report Type: Spontaneous
  Country: BR (occurrence: BR)
  Receive Date: 20241028
  Receipt Date: 20241211
  Transmission Date: 20250114
  Serious: Yes (Other)
  Sender: TAKEDA
  Company Number: BR-TAKEDA-2024TUS103345

PATIENT
  Sex: Female
  Weight: 86 kg

DRUGS (5)
  1. MESALAMINE [Suspect]
     Active Substance: MESALAMINE
     Indication: Crohn^s disease
     Dosage: UNK UNK, BID
  2. MESALAMINE [Suspect]
     Active Substance: MESALAMINE
     Indication: Haemorrhoids
     Dosage: UNK UNK, BID
  3. MESALAMINE [Suspect]
     Active Substance: MESALAMINE
     Dosage: UNK
  4. MESALAMINE [Suspect]
     Active Substance: MESALAMINE
     Dosage: UNK
  5. MESALAMINE [Suspect]
     Active Substance: MESALAMINE
     Dosage: UNK UNK, BID

REACTIONS (22)
  - Crohn^s disease [Unknown]
  - Autoimmune disorder [Unknown]
  - Bedridden [Unknown]
  - Anorectal disorder [Unknown]
  - Poor quality product administered [Unknown]
  - Granuloma [Unknown]
  - Pain [Recovering/Resolving]
  - Product residue present [Unknown]
  - Illness [Unknown]
  - Visual impairment [Unknown]
  - Off label use [Unknown]
  - Discomfort [Unknown]
  - Product physical issue [Unknown]
  - Swelling [Unknown]
  - Thermal burn [Unknown]
  - Product use issue [Unknown]
  - Drug ineffective [Unknown]
  - Condition aggravated [Unknown]
  - Malaise [Unknown]
  - Anorectal discomfort [Unknown]
  - Haemorrhage [Unknown]
  - Diarrhoea [Unknown]
